FAERS Safety Report 13466778 (Version 1)
Quarter: 2017Q2

REPORT INFORMATION
  Report Type: Spontaneous
  Country: GB (occurrence: GB)
  Receive Date: 20170421
  Receipt Date: 20170421
  Transmission Date: 20170830
  Serious: Yes (Other)
  Sender: FDA-Public Use
  Company Number: GB-AUROBINDO-AUR-APL-2017-32404

PATIENT
  Age: 36 Year
  Sex: Male
  Weight: 64.86 kg

DRUGS (5)
  1. MIRTAZAPINE. [Suspect]
     Active Substance: MIRTAZAPINE
     Indication: DEPRESSION
     Dosage: 45 MG, UNK
     Route: 048
     Dates: start: 20170310
  2. LANSOPRAZOLE. [Concomitant]
     Active Substance: LANSOPRAZOLE
     Indication: PRODUCT USED FOR UNKNOWN INDICATION
     Route: 048
  3. MIRTAZAPINE. [Suspect]
     Active Substance: MIRTAZAPINE
     Route: 048
  4. MIRTAZAPINE. [Suspect]
     Active Substance: MIRTAZAPINE
     Route: 048
     Dates: start: 20161019
  5. CLENIL MODULITE [Concomitant]
     Active Substance: BECLOMETHASONE DIPROPIONATE
     Indication: PRODUCT USED FOR UNKNOWN INDICATION
     Route: 048

REACTIONS (16)
  - Extrasystoles [Recovering/Resolving]
  - Mydriasis [Recovering/Resolving]
  - Eye pain [Recovering/Resolving]
  - Neck pain [Recovering/Resolving]
  - Pain in extremity [Recovering/Resolving]
  - Arrhythmia [Recovering/Resolving]
  - Musculoskeletal stiffness [Recovering/Resolving]
  - Fatigue [Recovering/Resolving]
  - Condition aggravated [Recovering/Resolving]
  - Confusional state [Recovering/Resolving]
  - Headache [Recovering/Resolving]
  - Arthralgia [Recovering/Resolving]
  - Somnolence [Recovering/Resolving]
  - Tension [Recovering/Resolving]
  - Myalgia [Recovering/Resolving]
  - Anxiety [Recovering/Resolving]

NARRATIVE: CASE EVENT DATE: 20170310
